FAERS Safety Report 20781603 (Version 1)
Quarter: 2022Q2

REPORT INFORMATION
  Report Type: Spontaneous
  Country: FR (occurrence: FR)
  Receive Date: 20220504
  Receipt Date: 20220504
  Transmission Date: 20220721
  Serious: Yes (Other)
  Sender: FDA-Public Use
  Company Number: None

PATIENT
  Age: 1 Year
  Sex: Male
  Weight: 12 kg

DRUGS (4)
  1. VANCOMYCIN [Suspect]
     Active Substance: VANCOMYCIN
     Indication: Neuroblastoma
     Route: 041
     Dates: start: 20210701
  2. ACUPAN [Suspect]
     Active Substance: NEFOPAM HYDROCHLORIDE
     Indication: Neuroblastoma
     Route: 041
     Dates: start: 20210701
  3. MORPHINE [Suspect]
     Active Substance: MORPHINE
     Indication: Neuroblastoma
     Route: 041
     Dates: start: 20210701
  4. ARGININE [Suspect]
     Active Substance: ARGININE
     Indication: Nutritional supplementation
     Route: 041
     Dates: start: 20210701

REACTIONS (1)
  - Extravasation [Recovered/Resolved]

NARRATIVE: CASE EVENT DATE: 20210701
